FAERS Safety Report 11806275 (Version 2)
Quarter: 2016Q1

REPORT INFORMATION
  Report Type: Spontaneous
  Country: US (occurrence: US)
  Receive Date: 20151207
  Receipt Date: 20160322
  Transmission Date: 20160525
  Serious: Yes (Other)
  Sender: FDA-Public Use
  Company Number: US-SUN PHARMACEUTICAL INDUSTRIES LTD-2015US-107282

PATIENT
  Sex: Female

DRUGS (1)
  1. CETIRIZINE [Suspect]
     Active Substance: CETIRIZINE HYDROCHLORIDE
     Indication: PRODUCT USED FOR UNKNOWN INDICATION
     Dosage: UNK
     Route: 065
     Dates: start: 201510, end: 201510

REACTIONS (1)
  - Hypoacusis [Recovered/Resolved]

NARRATIVE: CASE EVENT DATE: 201510
